FAERS Safety Report 9692864 (Version 4)
Quarter: 2013Q4

REPORT INFORMATION
  Report Type: Report from Study
  Country: BE (occurrence: BE)
  Receive Date: 20131118
  Receipt Date: 20131230
  Transmission Date: 20140711
  Serious: Yes (Other)
  Sender: FDA-Public Use
  Company Number: BE-JNJFOC-20131105234

PATIENT
  Age: 10 Year
  Sex: Female

DRUGS (1)
  1. REMICADE [Suspect]
     Indication: INFLAMMATORY BOWEL DISEASE
     Route: 042
     Dates: start: 20091028, end: 20130911

REACTIONS (2)
  - Anaphylactoid reaction [Recovered/Resolved]
  - Infusion related reaction [Recovered/Resolved]
